FAERS Safety Report 12925085 (Version 6)
Quarter: 2017Q1

REPORT INFORMATION
  Report Type: Report from Study
  Country: None (occurrence: IL)
  Receive Date: 20161108
  Receipt Date: 20170314
  Transmission Date: 20170428
  Serious: Yes (Hospitalization)
  Sender: FDA-Public Use
  Company Number: IL-ABBVIE-16P-082-1769701-00

PATIENT
  Age: 68 Year
  Sex: Male
  Weight: 84 kg

DRUGS (2)
  1. VENETOCLAX [Suspect]
     Active Substance: VENETOCLAX
     Indication: CHRONIC LYMPHOCYTIC LEUKAEMIA
     Route: 048
     Dates: start: 20160913, end: 20161029
  2. VENETOCLAX [Suspect]
     Active Substance: VENETOCLAX
     Route: 048

REACTIONS (8)
  - Cellulitis [Recovering/Resolving]
  - Incorrect drug administration duration [Recovering/Resolving]
  - Cellulitis [Unknown]
  - Haemoglobin decreased [Not Recovered/Not Resolved]
  - Chills [Recovered/Resolved]
  - Neutrophil count decreased [Recovering/Resolving]
  - Neutropenia [Unknown]
  - Pyrexia [Recovered/Resolved]

NARRATIVE: CASE EVENT DATE: 20161028
